FAERS Safety Report 10779653 (Version 1)
Quarter: 2015Q1

REPORT INFORMATION
  Report Type: Spontaneous
  Country: AU (occurrence: AU)
  Receive Date: 20150210
  Receipt Date: 20150210
  Transmission Date: 20150721
  Serious: Yes (Other)
  Sender: FDA-Public Use
  Company Number: AU-SA-2015SA014961

PATIENT
  Sex: Male

DRUGS (1)
  1. ALEMTUZUMAB [Suspect]
     Active Substance: ALEMTUZUMAB
     Indication: T-CELL PROLYMPHOCYTIC LEUKAEMIA
     Route: 065

REACTIONS (9)
  - Pyrexia [Unknown]
  - Cytokine release syndrome [Unknown]
  - Nausea [Unknown]
  - Vomiting [Unknown]
  - Chills [Unknown]
  - Coagulopathy [Unknown]
  - Liver function test abnormal [Unknown]
  - Paraesthesia [Unknown]
  - Myalgia [Unknown]
